FAERS Safety Report 12801318 (Version 1)
Quarter: 2016Q4

REPORT INFORMATION
  Report Type: Spontaneous
  Country: US (occurrence: US)
  Receive Date: 20161003
  Receipt Date: 20161003
  Transmission Date: 20170207
  Serious: Yes (Other)
  Sender: FDA-Public Use
  Company Number: US-ZYDUS-012134

PATIENT
  Age: 40 Year
  Sex: Male

DRUGS (4)
  1. ROSUVASTATIN/ROSUVASTATIN CALCIUM [Concomitant]
     Indication: PRODUCT USED FOR UNKNOWN INDICATION
     Route: 065
  2. LISINOPRIL. [Concomitant]
     Active Substance: LISINOPRIL
     Indication: PRODUCT USED FOR UNKNOWN INDICATION
     Route: 065
  3. METFORMIN [Suspect]
     Active Substance: METFORMIN HYDROCHLORIDE
     Indication: TYPE 2 DIABETES MELLITUS
     Route: 065
  4. TRIAMCINOLONE [Concomitant]
     Active Substance: TRIAMCINOLONE
     Indication: PSORIASIS
     Route: 061

REACTIONS (15)
  - Fatigue [Recovering/Resolving]
  - Rash erythematous [Recovered/Resolved]
  - Onycholysis [Unknown]
  - Skin plaque [Recovered/Resolved]
  - Staphylococcal infection [Unknown]
  - Rash pruritic [Recovered/Resolved]
  - Dermatitis psoriasiform [Unknown]
  - Drug reaction with eosinophilia and systemic symptoms [Recovered/Resolved]
  - Eosinophilia [Recovering/Resolving]
  - Exfoliative rash [Recovered/Resolved]
  - Condition aggravated [Recovered/Resolved]
  - Lymphadenopathy [Recovered/Resolved]
  - Papule [Recovered/Resolved]
  - Skin hyperpigmentation [Unknown]
  - White blood cell count increased [Recovered/Resolved]
